FAERS Safety Report 18911682 (Version 2)
Quarter: 2021Q1

REPORT INFORMATION
  Report Type: Spontaneous
  Country: US (occurrence: US)
  Receive Date: 20210218
  Receipt Date: 20210316
  Transmission Date: 20210420
  Serious: Yes (Hospitalization, Other)
  Sender: FDA-Public Use
  Company Number: US-COLLEGIUM PHARMACEUTICAL, INC.-2021CGM00112

PATIENT
  Age: 66 Year
  Sex: Male
  Weight: 79.37 kg

DRUGS (5)
  1. CRESTOR [Concomitant]
     Active Substance: ROSUVASTATIN CALCIUM
  2. DIOVAN [Concomitant]
     Active Substance: VALSARTAN
  3. SHORT?ACTING OXYCODONE [Concomitant]
  4. NEXIUM [Concomitant]
     Active Substance: ESOMEPRAZOLE MAGNESIUM
  5. XTAMPZA ER [Suspect]
     Active Substance: OXYCODONE
     Indication: PAIN
     Dosage: 18 MG, 3X/DAY
     Route: 048
     Dates: start: 20201125, end: 202012

REACTIONS (5)
  - Thrombosis [Not Recovered/Not Resolved]
  - Pulmonary thrombosis [Unknown]
  - Delirium [Recovered/Resolved]
  - Off label use [Recovered/Resolved]
  - Chest pain [Unknown]

NARRATIVE: CASE EVENT DATE: 20201125
